FAERS Safety Report 8887981 (Version 1)
Quarter: 2012Q4

REPORT INFORMATION
  Report Type: Spontaneous
  Country: RS (occurrence: None)
  Receive Date: 20121031
  Receipt Date: 20121031
  Transmission Date: 20130627
  Serious: Yes (Death, Other)
  Sender: FDA-Public Use
  Company Number: DSA_60404_2012

PATIENT
  Age: 13 Year
  Sex: Female

DRUGS (10)
  1. FLUOROURACIL [Suspect]
     Indication: ADENOCARCINOMA
     Dosage: (every other week)
  2. FLUOROURACIL [Suspect]
     Indication: ADENOCARCINOMA
     Dosage: (every other week)
  3. FLUOROURACIL [Suspect]
     Indication: ADENOCARCINOMA
  4. OXALIPLATIN [Suspect]
     Indication: ADENOCARCINOMA
     Dosage: every cycle)
  5. OXALIPLATIN [Suspect]
     Indication: ADENOCARCINOMA
  6. LEUCOVORIN [Suspect]
     Indication: ADENOCARCINOMA
     Dosage: (EVERY CYCLE)
  7. LEUCOVORIN [Suspect]
     Indication: ADENOCARCINOMA
  8. BEVACIZUMAB [Suspect]
     Indication: ADENOCARCINOMA
     Dosage: every cycle)
  9. CAPECITABINE [Suspect]
     Indication: ADENOCARCINOMA
  10. CETUXIMAB [Concomitant]

REACTIONS (4)
  - Bone marrow failure [None]
  - Paronychia [None]
  - Paraesthesia [None]
  - Nausea [None]
